FAERS Safety Report 7966585-3 (Version None)
Quarter: 2011Q4

REPORT INFORMATION
  Report Type: 
  Country: None (occurrence: None)
  Receive Date: 20111209
  Receipt Date: 20111202
  Transmission Date: 20120403
  Serious: Yes (Other)
  Sender: FDA-Public Use
  Company Number: US-AMGEN-USASP2011064234

PATIENT
  Age: 69 Year
  Sex: Female

DRUGS (2)
  1. ENBREL [Suspect]
     Indication: RHEUMATOID ARTHRITIS
     Dosage: UNK UNK, QWK
     Dates: start: 20040101
  2. SYNTHROID [Concomitant]
     Dosage: 0.88 MUG, UNK

REACTIONS (4)
  - THYROID DISORDER [None]
  - DYSPHONIA [None]
  - URTICARIA [None]
  - HYPERSENSITIVITY [None]
